FAERS Safety Report 9681295 (Version 1)
Quarter: 2013Q4

REPORT INFORMATION
  Report Type: Spontaneous
  Country: GB (occurrence: US)
  Receive Date: 20131111
  Receipt Date: 20131111
  Transmission Date: 20140711
  Serious: Yes (Other)
  Sender: FDA-Public Use
  Company Number: GB-ACTELION-A-NJ2013-90034

PATIENT
  Age: 65 Year
  Sex: Female

DRUGS (2)
  1. TRACLEER [Suspect]
     Indication: PULMONARY HYPERTENSION
     Route: 048
  2. LETAIRIS [Suspect]
     Indication: PULMONARY HYPERTENSION
     Dosage: 5 MG, UNK
     Route: 048
     Dates: start: 20130115

REACTIONS (12)
  - Biopsy liver [Unknown]
  - Non-alcoholic steatohepatitis [Unknown]
  - Hepatic steatosis [Unknown]
  - Hepatotoxicity [Unknown]
  - Hepatic congestion [Unknown]
  - Cardiac failure congestive [Unknown]
  - Right ventricular failure [Unknown]
  - Liver function test abnormal [Unknown]
  - Aspartate aminotransferase increased [Unknown]
  - Alanine aminotransferase increased [Unknown]
  - Abdominal pain upper [Unknown]
  - Waist circumference increased [Unknown]
